FAERS Safety Report 10059858 (Version 2)
Quarter: 2014Q2

REPORT INFORMATION
  Report Type: Report from Study
  Country: US (occurrence: US)
  Receive Date: 20140404
  Receipt Date: 20140418
  Transmission Date: 20141212
  Serious: Yes (Hospitalization)
  Sender: FDA-Public Use
  Company Number: US-ACTELION-A-US2014-96643

PATIENT
  Age: 58 Year
  Sex: Female

DRUGS (1)
  1. TRACLEER [Suspect]
     Indication: PULMONARY ARTERIAL HYPERTENSION
     Dosage: UNK
     Route: 048

REACTIONS (6)
  - Intestinal haemorrhage [Recovering/Resolving]
  - Melaena [Recovering/Resolving]
  - Endotracheal intubation [Recovering/Resolving]
  - Coma [Recovering/Resolving]
  - Ventricular assist device insertion [Recovering/Resolving]
  - Abdominal operation [Recovering/Resolving]
